FAERS Safety Report 10038751 (Version 1)
Quarter: 2014Q1

REPORT INFORMATION
  Report Type: Spontaneous
  Country: IL (occurrence: IL)
  Receive Date: 20140326
  Receipt Date: 20140326
  Transmission Date: 20141002
  Serious: Yes (Hospitalization)
  Sender: FDA-Public Use
  Company Number: IL-JNJFOC-20140311549

PATIENT
  Age: 55 Year
  Sex: Male

DRUGS (10)
  1. XARELTO [Suspect]
     Indication: EMBOLISM VENOUS
     Route: 048
     Dates: start: 201301
  2. XARELTO [Suspect]
     Indication: PULMONARY EMBOLISM
     Route: 048
     Dates: start: 201301
  3. XARELTO [Suspect]
     Indication: DEEP VEIN THROMBOSIS
     Route: 048
     Dates: start: 201301
  4. MICROPIRIN [Concomitant]
     Route: 065
  5. BEZAFIBRATE [Concomitant]
     Route: 065
  6. TRITACE [Concomitant]
     Route: 065
  7. INSULIN [Concomitant]
     Route: 065
  8. ALDACTONE [Concomitant]
     Route: 065
  9. LIPITOR [Concomitant]
     Route: 065
  10. CARVEDILOL [Concomitant]
     Route: 065

REACTIONS (2)
  - Deep vein thrombosis [Unknown]
  - Drug ineffective [Unknown]
